FAERS Safety Report 24261327 (Version 3)
Quarter: 2024Q4

REPORT INFORMATION
  Report Type: Spontaneous
  Country: US (occurrence: US)
  Receive Date: 20240829
  Receipt Date: 20241211
  Transmission Date: 20250114
  Serious: No
  Sender: ROCHE
  Company Number: US-ROCHE-10000062945

PATIENT
  Age: 42 Year
  Sex: Female

DRUGS (5)
  1. XOLAIR PFS [Suspect]
     Active Substance: OMALIZUMAB
     Indication: Idiopathic urticaria
     Dosage: STRENGTH: 150 MG/ML
     Route: 058
     Dates: start: 202404
  2. XOLAIR PFS [Suspect]
     Active Substance: OMALIZUMAB
  3. ACTEMRA ACTPEN [Suspect]
     Active Substance: TOCILIZUMAB
     Indication: Rheumatoid arthritis
     Dosage: STRENGTH: 162MG/0.9M
     Route: 058
     Dates: start: 202401
  4. FIRAZYR [Concomitant]
     Active Substance: ICATIBANT ACETATE
     Dosage: 6 DOSES
  5. KALBITOR [Concomitant]
     Active Substance: ECALLANTIDE

REACTIONS (3)
  - Swelling [Unknown]
  - Idiopathic urticaria [Unknown]
  - Abdominal distension [Unknown]
